FAERS Safety Report 6161057-3 (Version None)
Quarter: 2009Q2

REPORT INFORMATION
  Report Type: 
  Country: None (occurrence: None)
  Receive Date: 20090420
  Receipt Date: 20090408
  Transmission Date: 20091009
  Serious: Yes (Hospitalization)
  Sender: FDA-Public Use
  Company Number: US-PFIZER INC-2009195313

PATIENT
  Sex: Female

DRUGS (3)
  1. ZOLOFT [Suspect]
  2. CYMBALTA [Suspect]
     Dosage: 60 MG, UNK
     Dates: start: 20080901
  3. TIZANIDINE [Suspect]

REACTIONS (2)
  - MYOPATHY [None]
  - SEROTONIN SYNDROME [None]
